FAERS Safety Report 24869627 (Version 4)
Quarter: 2025Q1

REPORT INFORMATION
  Report Type: Spontaneous
  Country: US (occurrence: US)
  Receive Date: 20250121
  Receipt Date: 20250225
  Transmission Date: 20250409
  Serious: No
  Sender: PFIZER
  Company Number: US-PFIZER INC-PV202500006411

PATIENT
  Age: 69 Year
  Sex: Female
  Weight: 74.39 kg

DRUGS (1)
  1. ESTRING [Suspect]
     Active Substance: ESTRADIOL
     Indication: Atrophic vulvovaginitis
     Route: 067
     Dates: start: 2022

REACTIONS (4)
  - Manufacturing issue [Unknown]
  - Device material issue [Unknown]
  - Device defective [Unknown]
  - Poor quality device used [Unknown]

NARRATIVE: CASE EVENT DATE: 20241203
